FAERS Safety Report 24223837 (Version 1)
Quarter: 2024Q3

REPORT INFORMATION
  Report Type: Spontaneous
  Country: AU (occurrence: AU)
  Receive Date: 20240819
  Receipt Date: 20240819
  Transmission Date: 20241017
  Serious: Yes (Other)
  Sender: LUPIN
  Company Number: AU-GENERIC HEALTH PTY. LTD.-2024-07958

PATIENT

DRUGS (1)
  1. LEVOTHYROXINE SODIUM [Suspect]
     Active Substance: LEVOTHYROXINE SODIUM
     Indication: Product used for unknown indication
     Dosage: 75 MCG
     Route: 065

REACTIONS (7)
  - Feeling abnormal [Unknown]
  - Diarrhoea [Unknown]
  - Panic attack [Unknown]
  - Hypertension [Unknown]
  - Fatigue [Unknown]
  - Adverse event [Unknown]
  - Wrong technique in product usage process [Unknown]
